FAERS Safety Report 18599664 (Version 1)
Quarter: 2020Q4

REPORT INFORMATION
  Report Type: Spontaneous
  Country: US (occurrence: US)
  Receive Date: 20201109
  Receipt Date: 20201109
  Transmission Date: 20210114
  Serious: No
  Sender: FDA-Public Use
  Company Number: None

PATIENT
  Age: 7 Decade
  Sex: Female

DRUGS (3)
  1. IMMUNOGLOBULINS, INTRAVENOUS [Suspect]
     Active Substance: HUMAN IMMUNOGLOBULIN G
     Indication: COVID-19
     Dosage: ?          OTHER DOSE:0.4 G/KG;?
     Route: 042
     Dates: start: 2020
  2. LOPINAVIR-RITONAVIR [Suspect]
     Active Substance: LOPINAVIR\RITONAVIR
     Indication: COVID-19
     Dates: start: 2020
  3. HYDROXYCHLOROQUINE [Suspect]
     Active Substance: HYDROXYCHLOROQUINE
     Indication: COVID-19
     Dates: start: 2020

REACTIONS (11)
  - Psychomotor hyperactivity [None]
  - Bacterial infection [None]
  - Product use in unapproved indication [None]
  - Facial paralysis [None]
  - Guillain-Barre syndrome [None]
  - Condition aggravated [None]
  - Drug ineffective [None]
  - Hypoxia [None]
  - Multiple organ dysfunction syndrome [None]
  - Thrombosis [None]
  - Confusional state [None]
